FAERS Safety Report 22098857 (Version 1)
Quarter: 2023Q1

REPORT INFORMATION
  Report Type: Spontaneous
  Country: US (occurrence: None)
  Receive Date: 20230315
  Receipt Date: 20230315
  Transmission Date: 20230417
  Serious: Yes (Other)
  Sender: FDA-Public Use
  Company Number: None

PATIENT
  Age: 37 Year
  Sex: Female
  Weight: 85.05 kg

DRUGS (2)
  1. VENOFER [Suspect]
     Active Substance: IRON SUCROSE
     Indication: Iron deficiency anaemia
     Dosage: FREQUENCY : AS NEEDED;?
     Route: 042
     Dates: start: 20230314, end: 20230314
  2. VITAMIN B1 [Concomitant]
     Active Substance: THIAMINE HYDROCHLORIDE

REACTIONS (8)
  - Nausea [None]
  - Vomiting [None]
  - Urticaria [None]
  - Injection site rash [None]
  - Peripheral swelling [None]
  - Joint swelling [None]
  - Joint stiffness [None]
  - Joint stiffness [None]

NARRATIVE: CASE EVENT DATE: 20230314
